FAERS Safety Report 7369440-5 (Version None)
Quarter: 2011Q1

REPORT INFORMATION
  Report Type: 
  Country: None (occurrence: None)
  Receive Date: 20110323
  Receipt Date: 20090930
  Transmission Date: 20110831
  Serious: Yes (Other)
  Sender: FDA-Public Use
  Company Number: US-BAYER-2011-005583

PATIENT
  Sex: Female
  Weight: 99.773 kg

DRUGS (19)
  1. MULTIVITAMIN PREPARATION + MINERAL SUPPLEMENT [Concomitant]
     Dosage: UNK UNK, QD
     Route: 048
  2. DOBUTAMINE [Concomitant]
     Dosage: UNK
     Route: 042
     Dates: start: 20051109, end: 20051109
  3. EPINEPHRINE [Concomitant]
     Dosage: UNK
     Route: 042
     Dates: start: 20051109, end: 20051109
  4. VANCOMYCIN [Concomitant]
     Dosage: UNK
     Route: 042
     Dates: start: 20051109, end: 20051109
  5. FISH OIL [Concomitant]
     Route: 048
  6. EFFEXOR [Concomitant]
     Dosage: 75 MG, QD
     Route: 048
  7. ASPIRIN [Concomitant]
     Route: 048
  8. METOPROLOL [Concomitant]
     Dosage: UNK
     Route: 042
     Dates: start: 20051109, end: 20051109
  9. LASIX [Concomitant]
     Dosage: UNK
     Route: 042
     Dates: start: 20051109, end: 20051109
  10. FOLIC ACID [Concomitant]
     Dosage: 1 MG, QD
     Route: 048
  11. SOLU-MEDROL [Concomitant]
     Dosage: UNK
     Route: 042
     Dates: start: 20051109, end: 20051109
  12. INSULIN [Concomitant]
     Dosage: UNK
     Route: 042
     Dates: start: 20051109, end: 20051109
  13. TRASYLOL [Suspect]
     Indication: CORONARY ARTERY BYPASS
     Dosage: 1 ML, UNK
     Route: 042
     Dates: start: 20051109, end: 20051109
  14. GLYBURIDE AND METFORMIN HYDROCHLORIDE [Concomitant]
     Dosage: 5/500 TWO TABS EVERY MORNING AND 1 TAB/EVERY EVENING
     Route: 048
  15. QUINAPRIL [Concomitant]
     Dosage: 20 / DAILY
     Route: 048
  16. MANNITOL [Concomitant]
     Dosage: PUMP
     Dates: start: 20051109, end: 20051109
  17. PHENYLEPHRINE [Concomitant]
     Dosage: UNK
     Route: 042
     Dates: start: 20051109, end: 20051109
  18. RED BLOOD CELLS [Concomitant]
     Dosage: 2 UNITS PACKED
  19. VITAMIN E [Concomitant]
     Dosage: 1000 / DAILY
     Route: 048

REACTIONS (15)
  - ANXIETY [None]
  - EMOTIONAL DISTRESS [None]
  - DEPRESSION [None]
  - MENTAL DISORDER [None]
  - FEAR OF DEATH [None]
  - ANHEDONIA [None]
  - PAIN [None]
  - MULTI-ORGAN FAILURE [None]
  - RENAL FAILURE ACUTE [None]
  - RENAL FAILURE [None]
  - RENAL INJURY [None]
  - NERVOUSNESS [None]
  - INJURY [None]
  - UNEVALUABLE EVENT [None]
  - FEAR [None]
